FAERS Safety Report 8294751-9 (Version None)
Quarter: 2012Q2

REPORT INFORMATION
  Report Type: 
  Country: None (occurrence: None)
  Receive Date: 20120418
  Receipt Date: 20120413
  Transmission Date: 20120825
  Serious: Yes (Hospitalization)
  Sender: FDA-Public Use
  Company Number: AR-PFIZER INC-2012084872

PATIENT
  Age: 62 Year
  Sex: Female

DRUGS (4)
  1. PRISTIQ [Suspect]
     Indication: DEPRESSION
     Dosage: 50 MG, 1X/DAY
     Route: 048
     Dates: start: 20111021, end: 20120101
  2. OXCARBAZEPINE [Concomitant]
     Dosage: UNK
  3. CLONAZEPAM [Concomitant]
     Dosage: 2.5 MG, 1X/DAY
  4. QUETIAPINE [Concomitant]
     Dosage: UNK

REACTIONS (2)
  - HYPOMANIA [None]
  - DEHYDRATION [None]
